FAERS Safety Report 7685931-1 (Version None)
Quarter: 2011Q3

REPORT INFORMATION
  Report Type: 
  Country: None (occurrence: None)
  Receive Date: 20110816
  Receipt Date: 20110808
  Transmission Date: 20111222
  Serious: Yes (Other)
  Sender: FDA-Public Use
  Company Number: DK-TEVA-291945ISR

PATIENT
  Sex: Male
  Weight: 59 kg

DRUGS (7)
  1. CIPROFLOXACIN [Suspect]
     Indication: INFECTION
     Route: 048
     Dates: start: 20110414
  2. IMURAN [Interacting]
     Indication: LIVER TRANSPLANT REJECTION
     Route: 048
     Dates: start: 19920707
  3. CIPROFLOXACIN [Interacting]
     Indication: LIVER TRANSPLANT REJECTION
  4. LAMICTAL [Interacting]
     Indication: EPILEPSY
     Dosage: STYRKE: 250
     Route: 048
     Dates: start: 19930101
  5. FLEMOXIN SOLUTAB (AMOXICILLIN TRIHYDRATE) [Interacting]
     Indication: INFECTION
     Route: 048
     Dates: start: 20110414
  6. PREDNISOLONE [Interacting]
     Indication: LIVER TRANSPLANT REJECTION
     Route: 048
     Dates: start: 19920707
  7. TACROLIMUS [Interacting]
     Indication: LIVER TRANSPLANT REJECTION
     Route: 048
     Dates: start: 19920707

REACTIONS (4)
  - EPILEPTIC AURA [None]
  - DIPLOPIA [None]
  - DIZZINESS [None]
  - DRUG INTERACTION [None]
